FAERS Safety Report 17452646 (Version 1)
Quarter: 2020Q1

REPORT INFORMATION
  Report Type: Report from Study
  Country: US (occurrence: US)
  Receive Date: 20200224
  Receipt Date: 20200224
  Transmission Date: 20200409
  Serious: Yes (Hospitalization)
  Sender: FDA-Public Use
  Company Number: US-ACTELION-A-US2020-202190

PATIENT
  Age: 49 Year
  Sex: Female

DRUGS (27)
  1. SILDENAFIL. [Concomitant]
     Active Substance: SILDENAFIL
  2. FISH OIL [Concomitant]
     Active Substance: FISH OIL
  3. SUCRALFATE. [Concomitant]
     Active Substance: SUCRALFATE
  4. ESTRACE [Concomitant]
     Active Substance: ESTRADIOL
  5. FLONASE [Concomitant]
     Active Substance: FLUTICASONE PROPIONATE
  6. CALCIUM CARBONATE. [Concomitant]
     Active Substance: CALCIUM CARBONATE
  7. BROVANA [Concomitant]
     Active Substance: ARFORMOTEROL TARTRATE
  8. ALBUTEROL. [Concomitant]
     Active Substance: ALBUTEROL
  9. SERTRALINE [Concomitant]
     Active Substance: SERTRALINE HYDROCHLORIDE
  10. ATORVASTATIN [Concomitant]
     Active Substance: ATORVASTATIN
  11. DULOXETINE. [Concomitant]
     Active Substance: DULOXETINE
  12. VENTOLIN [Concomitant]
     Active Substance: ALBUTEROL SULFATE
  13. OPSUMIT [Suspect]
     Active Substance: MACITENTAN
     Indication: PULMONARY HYPERTENSION
     Dosage: 10 MG, QD
     Route: 048
     Dates: start: 201909
  14. VITAMIN D3 [Concomitant]
     Active Substance: CHOLECALCIFEROL
  15. MODAFINIL. [Concomitant]
     Active Substance: MODAFINIL
  16. STIOLTO RESPIMAT [Concomitant]
     Active Substance: OLODATEROL HYDROCHLORIDE\TIOTROPIUM BROMIDE MONOHYDRATE
  17. VITAMIN B12 [Concomitant]
     Active Substance: CYANOCOBALAMIN
  18. FERROUS SULFATE. [Concomitant]
     Active Substance: FERROUS SULFATE
  19. PULMICORT TURBUHALER [Concomitant]
     Active Substance: BUDESONIDE
  20. URSODIOL. [Concomitant]
     Active Substance: URSODIOL
  21. HYDROXYCHLOROQUINE [Concomitant]
     Active Substance: HYDROXYCHLOROQUINE
  22. PILOCARPINE. [Concomitant]
     Active Substance: PILOCARPINE
  23. BUPROPION. [Concomitant]
     Active Substance: BUPROPION
  24. NORCO [Concomitant]
     Active Substance: ACETAMINOPHEN\HYDROCODONE BITARTRATE
  25. METOCLOPRAMIDE. [Concomitant]
     Active Substance: METOCLOPRAMIDE
  26. FLAXSEED [Concomitant]
     Active Substance: FLAX SEED
  27. OMEPRAZOLE. [Concomitant]
     Active Substance: OMEPRAZOLE

REACTIONS (6)
  - Cough [Recovering/Resolving]
  - Chest pain [Recovering/Resolving]
  - Dyspnoea [Recovering/Resolving]
  - Asthma [Recovering/Resolving]
  - Interstitial lung disease [Recovering/Resolving]
  - Back pain [Recovering/Resolving]

NARRATIVE: CASE EVENT DATE: 202002
